FAERS Safety Report 16707476 (Version 8)
Quarter: 2021Q1

REPORT INFORMATION
  Report Type: Report from Study
  Country: US (occurrence: US)
  Receive Date: 20190815
  Receipt Date: 20210205
  Transmission Date: 20210419
  Serious: Yes (Hospitalization)
  Sender: FDA-Public Use
  Company Number: PHHO2019US005942

PATIENT
  Age: 48 Year
  Sex: Female
  Weight: 92 kg

DRUGS (5)
  1. NAPORAFENIB. [Suspect]
     Active Substance: NAPORAFENIB
     Indication: MALIGNANT MELANOMA
     Dosage: 400 MG, BID
     Route: 048
     Dates: start: 20190520, end: 20190527
  2. PREDNISONE. [Suspect]
     Active Substance: PREDNISONE
     Indication: AUTOIMMUNE HEPATITIS
     Dosage: 9 MG, QD
     Route: 048
     Dates: start: 20190509
  3. NAPORAFENIB. [Suspect]
     Active Substance: NAPORAFENIB
     Indication: NEOPLASM
  4. PDR001 [Suspect]
     Active Substance: SPARTALIZUMAB
     Indication: MALIGNANT MELANOMA
     Dosage: 400 MG, QMO
     Route: 042
     Dates: start: 20190520
  5. PDR001 [Suspect]
     Active Substance: SPARTALIZUMAB
     Indication: NEOPLASM

REACTIONS (1)
  - Hyperglycaemia [Recovered/Resolved]

NARRATIVE: CASE EVENT DATE: 20190528
